FAERS Safety Report 5288770-4 (Version None)
Quarter: 2007Q2

REPORT INFORMATION
  Report Type: 
  Country: None (occurrence: None)
  Receive Date: 20070405
  Receipt Date: 20070323
  Transmission Date: 20071010
  Serious: Yes (Disabling)
  Sender: FDA-Public Use
  Company Number: ES-ELI_LILLY_AND_COMPANY-ES200703005565

PATIENT
  Age: 76 Year
  Sex: Female

DRUGS (13)
  1. CYMBALTA [Suspect]
     Dosage: 60 MG, DAILY (1/D)
     Route: 048
     Dates: start: 20061201, end: 20070101
  2. MICARDIS HCT [Concomitant]
     Dosage: 80 MG, DAILY (1/D)
     Route: 048
  3. ADIRO [Concomitant]
     Dosage: 100 MG, DAILY (1/D)
     Route: 048
  4. HEMOVAS [Concomitant]
     Dosage: 600 MG, UNKNOWN
     Route: 048
  5. LOFTON [Concomitant]
     Dosage: 150 MG, UNKNOWN
     Route: 048
  6. IDAPTAN [Concomitant]
     Dosage: 20 MG, UNKNOWN
     Route: 048
  7. ULCOTENAL [Concomitant]
     Dosage: 40 MG, UNKNOWN
     Route: 048
  8. TORADOL [Concomitant]
     Dosage: 10 MG, UNKNOWN
     Route: 048
  9. UROLOSIN [Concomitant]
     Dosage: 0.4 MG, UNKNOWN
     Route: 048
  10. ANDROCUR [Concomitant]
     Dosage: 50 MG, UNKNOWN
     Route: 048
  11. LEXATIN [Concomitant]
     Dosage: 1.5 MG, UNKNOWN
     Route: 048
  12. PRANDIN /USA/ [Concomitant]
     Dosage: 0.5 MG, UNKNOWN
     Route: 048
  13. DEPRAX [Concomitant]
     Dosage: 50 MG, DAILY (1/D)
     Route: 048

REACTIONS (2)
  - BRADYPHRENIA [None]
  - GAIT DISTURBANCE [None]
